FAERS Safety Report 25031412 (Version 3)
Quarter: 2025Q1

REPORT INFORMATION
  Report Type: Spontaneous
  Country: US (occurrence: US)
  Receive Date: 20250303
  Receipt Date: 20250311
  Transmission Date: 20250408
  Serious: No
  Sender: ABBVIE
  Company Number: US-ABBVIE-6158729

PATIENT
  Age: 67 Year
  Sex: Female

DRUGS (4)
  1. SYNTHROID [Suspect]
     Active Substance: LEVOTHYROXINE SODIUM
     Indication: Hypothyroidism
     Dosage: FORM STRENGTH: 75 MICROGRAM
     Route: 048
     Dates: start: 2015, end: 20250223
  2. SYNTHROID [Suspect]
     Active Substance: LEVOTHYROXINE SODIUM
     Indication: Hypothyroidism
     Dosage: FORM STRENGTH: 75 MICROGRAM
     Route: 048
     Dates: start: 20250225, end: 20250226
  3. SYNTHROID [Suspect]
     Active Substance: LEVOTHYROXINE SODIUM
     Indication: Hypothyroidism
     Dosage: FORM STRENGTH: 75 MICROGRAM
     Route: 048
     Dates: start: 20250228
  4. LEVOTHYROXINE [Suspect]
     Active Substance: LEVOTHYROXINE
     Indication: Hypothyroidism
     Dosage: FORM STRENGTH: 75 MICROGRAM?STOP DATE TEXT: 8 TO 10 YEARS AGO
     Route: 048
     Dates: start: 2006

REACTIONS (4)
  - Product quality issue [Unknown]
  - Hyperthyroidism [Not Recovered/Not Resolved]
  - Palpitations [Unknown]
  - Supraventricular tachycardia [Unknown]

NARRATIVE: CASE EVENT DATE: 20250201
